FAERS Safety Report 4285814-3 (Version None)
Quarter: 2004Q1

REPORT INFORMATION
  Report Type: 
  Country: None (occurrence: None)
  Receive Date: 20040203
  Receipt Date: 20040121
  Transmission Date: 20041129
  Serious: Yes (Hospitalization, Other)
  Sender: FDA-Public Use
  Company Number: US-JNJFOC-20031002521

PATIENT
  Age: 39 Year
  Sex: Male
  Weight: 86.1834 kg

DRUGS (6)
  1. REMICADE [Suspect]
     Indication: CROHN'S DISEASE
     Dosage: INTRAVENOUS
     Route: 042
     Dates: start: 20000101
  2. MERCAPTOPURINE [Concomitant]
  3. ASACOL [Concomitant]
  4. LUVOX [Concomitant]
  5. AMITRIPTYLINE HCL [Concomitant]
  6. ANAFRANIL [Concomitant]

REACTIONS (11)
  - ATRIAL THROMBOSIS [None]
  - CARDIAC FAILURE CONGESTIVE [None]
  - CONGESTIVE CARDIOMYOPATHY [None]
  - ELECTROCARDIOGRAM T WAVE INVERSION [None]
  - INTERSTITIAL LUNG DISEASE [None]
  - MITRAL VALVE INCOMPETENCE [None]
  - PULMONARY ARTERIAL WEDGE PRESSURE INCREASED [None]
  - SINUS TACHYCARDIA [None]
  - SUPRAVENTRICULAR EXTRASYSTOLES [None]
  - VENTRICULAR EXTRASYSTOLES [None]
  - WEIGHT DECREASED [None]
